FAERS Safety Report 12751189 (Version 1)
Quarter: 2016Q3

REPORT INFORMATION
  Report Type: Spontaneous
  Country: US (occurrence: US)
  Receive Date: 20160914
  Receipt Date: 20160914
  Transmission Date: 20161109
  Serious: No
  Sender: FDA-Public Use
  Company Number: None

PATIENT
  Age: 13 Year
  Sex: Male

DRUGS (2)
  1. MYCOPHENOLATE MOFETIL CAP 250MG [Suspect]
     Active Substance: MYCOPHENOLATE MOFETIL
     Indication: COLITIS ULCERATIVE
  2. MYCOPHENOLATE MOFETIL CAP 250MG [Suspect]
     Active Substance: MYCOPHENOLATE MOFETIL
     Indication: NEPHROLITHIASIS

REACTIONS (2)
  - Confusional state [None]
  - Disturbance in attention [None]

NARRATIVE: CASE EVENT DATE: 20160914
